FAERS Safety Report 11400983 (Version 2)
Quarter: 2015Q3

REPORT INFORMATION
  Report Type: Report from Study
  Country: JP (occurrence: JP)
  Receive Date: 20150820
  Receipt Date: 20150918
  Transmission Date: 20151125
  Serious: Yes (Other)
  Sender: FDA-Public Use
  Company Number: JP-EISAI MEDICAL RESEARCH-EC-2015-009727

PATIENT
  Age: 14 Year
  Sex: Female
  Weight: 39.5 kg

DRUGS (7)
  1. INOVELON [Suspect]
     Active Substance: RUFINAMIDE
     Indication: LENNOX-GASTAUT SYNDROME
     Dates: start: 20131109, end: 20131114
  2. INOVELON [Suspect]
     Active Substance: RUFINAMIDE
     Dates: start: 20131115, end: 20131116
  3. TOPINA [Concomitant]
     Active Substance: TOPIRAMATE
  4. LANDSEN [Concomitant]
     Active Substance: CLONAZEPAM
  5. KEPPRA [Concomitant]
     Active Substance: LEVETIRACETAM
  6. TEGRETOL [Concomitant]
     Active Substance: CARBAMAZEPINE
  7. DEPAKENE [Concomitant]
     Active Substance: VALPROIC ACID

REACTIONS (1)
  - Status epilepticus [Recovering/Resolving]

NARRATIVE: CASE EVENT DATE: 20131115
